FAERS Safety Report 5976074-3 (Version None)
Quarter: 2008Q4

REPORT INFORMATION
  Report Type: 
  Country: None (occurrence: None)
  Receive Date: 20081202
  Receipt Date: 20081124
  Transmission Date: 20090506
  Serious: Yes (Other)
  Sender: FDA-Public Use
  Company Number: US-WYE-H06974708

PATIENT
  Age: 2 Year
  Sex: Male
  Weight: 18.16 kg

DRUGS (4)
  1. DIMETAPP DM COUGH AND COLD [Suspect]
     Indication: COUGH
     Dosage: 1/2 TEASPOON 1 TIME
     Route: 048
     Dates: start: 20081119, end: 20081119
  2. SINGULAIR [Concomitant]
  3. XOPENEX [Concomitant]
  4. FLOVENT [Concomitant]

REACTIONS (3)
  - CONVULSION [None]
  - OFF LABEL USE [None]
  - UNRESPONSIVE TO STIMULI [None]
